FAERS Safety Report 11158008 (Version 1)
Quarter: 2015Q2

REPORT INFORMATION
  Report Type: Spontaneous
  Country: US (occurrence: US)
  Receive Date: 20150603
  Receipt Date: 20150603
  Transmission Date: 20150821
  Serious: Yes (Other)
  Sender: FDA-Public Use
  Company Number: US-ELI_LILLY_AND_COMPANY-US201505010457

PATIENT
  Sex: Male

DRUGS (4)
  1. VITAMINS NOS [Concomitant]
     Active Substance: VITAMINS
  2. HUMALOG [Suspect]
     Active Substance: INSULIN LISPRO
     Dosage: 25 U, EACH EVENING
     Route: 058
  3. HUMALOG [Suspect]
     Active Substance: INSULIN LISPRO
     Indication: DIABETES MELLITUS
     Dosage: 33 U, EACH MORNING
     Route: 058
  4. ASPIRIN                            /00002701/ [Concomitant]
     Active Substance: ASPIRIN

REACTIONS (8)
  - Essential hypertension [Unknown]
  - Vitamin D deficiency [Unknown]
  - Incorrect product storage [Unknown]
  - Chronic kidney disease [Unknown]
  - Overweight [Unknown]
  - Coronary artery disease [Unknown]
  - Amnesia [Unknown]
  - Prostatic specific antigen increased [Unknown]
